FAERS Safety Report 7470817-8 (Version None)
Quarter: 2011Q2

REPORT INFORMATION
  Report Type: 
  Country: None (occurrence: None)
  Receive Date: 20110510
  Receipt Date: 20110503
  Transmission Date: 20111010
  Serious: Yes (Hospitalization, Other)
  Sender: FDA-Public Use
  Company Number: RU-PFIZER INC-2011079362

PATIENT
  Age: 64 Year
  Sex: Female

DRUGS (11)
  1. DEXAMETHASONE SODIUM PHOSPHATE [Suspect]
     Indication: FACE OEDEMA
  2. ACETYLSALICYLIC ACID [Concomitant]
     Dosage: UNK
     Dates: start: 20110125
  3. CELECOXIB [Suspect]
  4. THIOCTACID [Suspect]
     Indication: OSTEOCHONDROSIS
     Dosage: 300 MG, UNK
     Route: 048
     Dates: start: 20110304, end: 20110316
  5. METFORMIN HCL [Suspect]
     Indication: TYPE 2 DIABETES MELLITUS
     Dosage: UNK
  6. BLINDED THERAPY [Suspect]
     Indication: TYPE 2 DIABETES MELLITUS
     Dosage: 5 MG, UNK
     Dates: start: 20110128, end: 20110317
  7. DIMEDROLUM [Concomitant]
     Dosage: UNK
     Dates: start: 20110317, end: 20110321
  8. LASOLVAN [Concomitant]
     Dosage: UNK
     Dates: start: 20110209, end: 20110221
  9. MEBHYDROLIN [Concomitant]
     Dosage: UNK
     Dates: start: 20110317, end: 20110329
  10. DEXAMETHASONE SODIUM PHOSPHATE [Suspect]
     Indication: URTICARIA
     Dosage: 12 MG, UNK
     Route: 042
     Dates: start: 20110209, end: 20110322
  11. BERODUAL [Concomitant]
     Dosage: UNK
     Dates: start: 20110209, end: 20110225

REACTIONS (4)
  - FACE OEDEMA [None]
  - PANCREATITIS CHRONIC [None]
  - URTICARIA [None]
  - ASTHMA [None]
